FAERS Safety Report 22085951 (Version 2)
Quarter: 2023Q1

REPORT INFORMATION
  Report Type: Spontaneous
  Country: AR (occurrence: AR)
  Receive Date: 20230310
  Receipt Date: 20230321
  Transmission Date: 20230418
  Serious: Yes (Other)
  Sender: FDA-Public Use
  Company Number: AR-BoehringerIngelheim-2023-BI-223959

PATIENT
  Age: 71 Year
  Sex: Male

DRUGS (1)
  1. JARDIANCE [Suspect]
     Active Substance: EMPAGLIFLOZIN
     Indication: Type 2 diabetes mellitus

REACTIONS (6)
  - Bladder transitional cell carcinoma [Unknown]
  - Precancerous condition [Unknown]
  - Blood glucose increased [Unknown]
  - Neutrophil percentage decreased [Unknown]
  - Monocyte percentage increased [Unknown]
  - Haematuria [Unknown]

NARRATIVE: CASE EVENT DATE: 20220801
